FAERS Safety Report 9462680 (Version 3)
Quarter: 2013Q3

REPORT INFORMATION
  Report Type: Spontaneous
  Country: NE (occurrence: NE)
  Receive Date: 20130816
  Receipt Date: 20130906
  Transmission Date: 20140515
  Serious: Yes (Death, Other)
  Sender: FDA-Public Use
  Company Number: NE-BRISTOL-MYERS SQUIBB COMPANY-19188259

PATIENT
  Age: 56 Year
  Sex: Male
  Weight: 65 kg

DRUGS (1)
  1. SPRYCEL [Suspect]
     Dates: start: 20130602

REACTIONS (2)
  - Pancytopenia [Fatal]
  - Pneumonia [Unknown]
